FAERS Safety Report 4403665-3 (Version None)
Quarter: 2004Q3

REPORT INFORMATION
  Report Type: 
  Country: None (occurrence: None)
  Receive Date: 20040721
  Receipt Date: 20040625
  Transmission Date: 20050211
  Serious: Yes (Hospitalization)
  Sender: FDA-Public Use
  Company Number: JP-ROCHE-372378

PATIENT
  Age: 13 Year
  Sex: Male
  Weight: 40 kg

DRUGS (4)
  1. TAMIFLU [Suspect]
     Route: 048
     Dates: start: 20040219, end: 20040219
  2. LOXONIN [Concomitant]
     Route: 048
     Dates: start: 20040219, end: 20040219
  3. DIMEMORFAN PHOSPHATE [Concomitant]
     Indication: COUGH
     Route: 048
     Dates: start: 20040219, end: 20040219
  4. NIPOLAZIN [Concomitant]
     Route: 048
     Dates: start: 20040219, end: 20040219

REACTIONS (4)
  - CONVULSION [None]
  - HALLUCINATION [None]
  - LOSS OF CONSCIOUSNESS [None]
  - VOMITING [None]
